FAERS Safety Report 24713251 (Version 1)
Quarter: 2024Q4

REPORT INFORMATION
  Report Type: Spontaneous
  Country: US (occurrence: US)
  Receive Date: 20241209
  Receipt Date: 20241209
  Transmission Date: 20250114
  Serious: No
  Sender: REGENERON
  Company Number: US-REGENERON PHARMACEUTICALS, INC.-2023-157562

PATIENT
  Sex: Female

DRUGS (4)
  1. EYLEA [Suspect]
     Active Substance: AFLIBERCEPT
     Indication: Age-related macular degeneration
     Dosage: UNK, 6-7 WEEKS, LEFT EYE (FORMULATION: UNKNOWN)
     Dates: start: 2020
  2. EYLEA [Suspect]
     Active Substance: AFLIBERCEPT
     Dosage: UNK, 8-10 WEEKS, LEFT EYE (FORMULATION: UNKNOWN)
  3. EYLEA [Suspect]
     Active Substance: AFLIBERCEPT
     Dosage: UNK, 13 WEEKS, LEFT EYE (FORMULATION: UNKNOWN)
     Dates: start: 20231114, end: 20231114
  4. EYLEA [Suspect]
     Active Substance: AFLIBERCEPT
     Dosage: UNK, LEFT EYE (FORMULATION: UNKNOWN)
     Dates: start: 20231226

REACTIONS (8)
  - Visual impairment [Unknown]
  - Headache [Unknown]
  - Visual field defect [Unknown]
  - Dysgeusia [Unknown]
  - Pharyngeal hypoaesthesia [Recovering/Resolving]
  - Chest discomfort [Recovering/Resolving]
  - Vision blurred [Unknown]
  - Injection site pain [Unknown]

NARRATIVE: CASE EVENT DATE: 20231201
